FAERS Safety Report 21280646 (Version 1)
Quarter: 2022Q3

REPORT INFORMATION
  Report Type: Spontaneous
  Country: US (occurrence: US)
  Receive Date: 20220901
  Receipt Date: 20220901
  Transmission Date: 20221027
  Serious: No
  Sender: FDA-Public Use
  Company Number: US-LUPIN PHARMACEUTICALS INC.-2022-10691

PATIENT
  Age: 63 Year
  Sex: Female

DRUGS (28)
  1. GABAPENTIN [Suspect]
     Active Substance: GABAPENTIN
     Indication: Cancer pain
     Dosage: 300 MG, TID
     Route: 065
  2. OXYCODONE [Concomitant]
     Active Substance: OXYCODONE
     Indication: Cancer pain
     Dosage: UNK (USING 5 TIMES DAILY ON AVERAGE)
     Route: 065
  3. CARBOPLATIN [Concomitant]
     Active Substance: CARBOPLATIN
     Indication: Invasive ductal breast carcinoma
     Dosage: UNK (RECEIVED 5 CYCLES)
     Route: 065
  4. GEMCITABINE [Concomitant]
     Active Substance: GEMCITABINE
     Indication: Invasive ductal breast carcinoma
     Dosage: UNK (RECEIVED 5 CYCLES)
     Route: 065
  5. METHADONE [Concomitant]
     Active Substance: METHADONE HYDROCHLORIDE
     Indication: Cancer pain
     Dosage: 5 MG, BID
     Route: 065
  6. HYDROMORPHONE [Concomitant]
     Active Substance: HYDROMORPHONE
     Indication: Cancer pain
     Dosage: 1 MG (EVERY 4 HOURS AS NEEDED)
     Route: 065
  7. HYDROMORPHONE [Concomitant]
     Active Substance: HYDROMORPHONE
     Dosage: 0.5 MG, UNK (A DEMAND DOSE OF 0.5 MG, 10 MIN LOCKOUT)
     Route: 065
  8. HYDROMORPHONE [Concomitant]
     Active Substance: HYDROMORPHONE
     Dosage: 0.6 MG, UNK (0.6 MG/HR WITH 1 MG IV AVAILABLE EVERY 1 HOUR AS NEEDED)
     Route: 042
  9. HYDROMORPHONE [Concomitant]
     Active Substance: HYDROMORPHONE
     Dosage: 1 MG, UNK (1 MG IV EVERY 1 HOUR AS NEEDED)
     Route: 042
  10. HYDROMORPHONE [Concomitant]
     Active Substance: HYDROMORPHONE
     Dosage: 0.8 MG (0.8 MG/HR)
     Route: 065
  11. ATIVAN [Concomitant]
     Active Substance: LORAZEPAM
     Indication: Anxiety
     Dosage: 0.5 MG, UNK (AS NEEDED BEFORE IMAGING STUDIES)
     Route: 048
  12. ATIVAN [Concomitant]
     Active Substance: LORAZEPAM
     Dosage: 0.5 MG PO Q 6 HOURS AS NEEDED
     Route: 048
  13. DEXAMETHASONE [Concomitant]
     Active Substance: DEXAMETHASONE
     Indication: Cancer pain
     Dosage: 10 MG, QD
     Route: 065
  14. LEXAPRO [Concomitant]
     Active Substance: ESCITALOPRAM OXALATE
     Indication: Generalised anxiety disorder
     Dosage: 5 MG, QD
     Route: 065
  15. LIDOCAINE [Concomitant]
     Active Substance: LIDOCAINE
     Indication: Cancer pain
     Dosage: 1.5 MILLIGRAM/KILOGRAM
     Route: 065
  16. LIDOCAINE [Concomitant]
     Active Substance: LIDOCAINE
     Dosage: 1 MILLIGRAM/KILOGRAM (PER HOUR)
     Route: 065
  17. LIDOCAINE [Concomitant]
     Active Substance: LIDOCAINE
     Dosage: 1.5 MILLIGRAM/KILOGRAM (PER HOUR)
     Route: 065
  18. CHLORPROMAZINE [Concomitant]
     Active Substance: CHLORPROMAZINE
     Indication: Delirium
     Dosage: 25 MG, UNK (25 MG IV INFUSED OVER 30 MINUTES)
     Route: 042
  19. CHLORPROMAZINE [Concomitant]
     Active Substance: CHLORPROMAZINE
     Indication: Insomnia
     Dosage: 25 MG, UNK
     Route: 065
  20. DEXMEDETOMIDINE [Concomitant]
     Active Substance: DEXMEDETOMIDINE
     Indication: Cancer pain
     Dosage: 0.1 MILLIGRAM/KILOGRAM (PER HOUR)
     Route: 065
  21. DEXMEDETOMIDINE [Concomitant]
     Active Substance: DEXMEDETOMIDINE
     Indication: Generalised anxiety disorder
     Dosage: 0.2 MILLIGRAM/KILOGRAM (PER HOUR)
     Route: 065
  22. DEXMEDETOMIDINE [Concomitant]
     Active Substance: DEXMEDETOMIDINE
     Dosage: 0.4 MILLIGRAM/KILOGRAM (PER HOUR)
     Route: 065
  23. DEXMEDETOMIDINE [Concomitant]
     Active Substance: DEXMEDETOMIDINE
     Dosage: 0.5 MILLIGRAM/KILOGRAM (PER HOUR)
     Route: 065
  24. TRAZODONE [Concomitant]
     Active Substance: TRAZODONE HYDROCHLORIDE
     Indication: Insomnia
     Dosage: 25 MG, QD (25 MG EVERY NIGHT AT BED TIME WITH AN ADDITIONAL DOSE 25 MG AS NEEDED)
     Route: 065
  25. TRAZODONE [Concomitant]
     Active Substance: TRAZODONE HYDROCHLORIDE
     Dosage: 150 MG, QD (EVERY NIGHT AT BED TIME)
     Route: 065
  26. RISPERIDONE [Concomitant]
     Active Substance: RISPERIDONE
     Indication: Generalised anxiety disorder
     Dosage: 0.5 MG, UNK (0.5 MG EVERY 4 HOURS AS NEEDED)
     Route: 065
  27. RISPERIDONE [Concomitant]
     Active Substance: RISPERIDONE
     Indication: Panic disorder
  28. RISPERIDONE [Concomitant]
     Active Substance: RISPERIDONE
     Indication: Hallucination

REACTIONS (1)
  - Off label use [Unknown]
